FAERS Safety Report 13044904 (Version 1)
Quarter: 2016Q4

REPORT INFORMATION
  Report Type: Spontaneous
  Country: US (occurrence: US)
  Receive Date: 20161220
  Receipt Date: 20161220
  Transmission Date: 20170207
  Serious: No
  Sender: FDA-Public Use
  Company Number: US-BIOVITRUM-2015US0503

PATIENT
  Age: 42 Year
  Sex: Female
  Weight: 47.67 kg

DRUGS (10)
  1. STEROIDS [Concomitant]
     Active Substance: UNSPECIFIED INGREDIENT
  2. KINERET [Suspect]
     Active Substance: ANAKINRA
     Indication: RHEUMATOID ARTHRITIS
     Route: 058
     Dates: start: 20150731, end: 20150807
  3. GAMMAGARD [Concomitant]
     Active Substance: HUMAN IMMUNOGLOBULIN G
     Indication: IMMUNODEFICIENCY
     Route: 042
     Dates: start: 201406
  4. PYLOCARPINE [Concomitant]
     Route: 048
     Dates: start: 2013
  5. RELAFEN [Concomitant]
     Active Substance: NABUMETONE
     Dosage: 750 MG TWICE DAILY AS NEEDED
     Route: 048
  6. PLAQUINEL [Concomitant]
     Indication: SYSTEMIC LUPUS ERYTHEMATOSUS
     Route: 048
  7. BENLYSTA [Concomitant]
     Active Substance: BELIMUMAB
     Route: 042
     Dates: start: 201503
  8. COLTRAZINE [Concomitant]
     Route: 048
     Dates: start: 2012
  9. PEPCID [Concomitant]
     Active Substance: FAMOTIDINE
     Route: 048
  10. FOLIC ACID. [Concomitant]
     Active Substance: FOLIC ACID
     Route: 048
     Dates: start: 2013

REACTIONS (5)
  - Rash [Recovered/Resolved]
  - Cellulitis [Recovered/Resolved]
  - Urticaria [Recovered/Resolved]
  - Injection site pruritus [Recovered/Resolved]
  - Chest pain [Recovering/Resolving]

NARRATIVE: CASE EVENT DATE: 20150807
